FAERS Safety Report 26126816 (Version 1)
Quarter: 2025Q4

REPORT INFORMATION
  Report Type: Spontaneous
  Country: CA (occurrence: CA)
  Receive Date: 20251205
  Receipt Date: 20251205
  Transmission Date: 20260118
  Serious: Yes (Other)
  Sender: NOVO NORDISK
  Company Number: CA-NOVOPROD-1573716

PATIENT

DRUGS (1)
  1. INSULIN BEEF [Suspect]
     Active Substance: INSULIN BEEF
     Indication: Type 1 diabetes mellitus
     Dosage: UNK

REACTIONS (2)
  - Seizure [Unknown]
  - Quality of life decreased [Unknown]
